FAERS Safety Report 4290108-6 (Version None)
Quarter: 2004Q1

REPORT INFORMATION
  Report Type: 
  Country: None (occurrence: None)
  Receive Date: 20040210
  Receipt Date: 20040130
  Transmission Date: 20041129
  Serious: Yes (Disabling)
  Sender: FDA-Public Use
  Company Number: FR-ROCHE-357665

PATIENT
  Age: 36 Year
  Sex: Female

DRUGS (4)
  1. SORIATANE [Suspect]
     Dosage: DOSING AMOUNT REPORTED AS 0.6 MG/KG/DAY.
     Route: 048
     Dates: end: 20031015
  2. SORIATANE [Suspect]
     Dosage: DOSING AMOUNT REPORTED AS 0.6 MG/KG/DAY. TREATMENT DISCONTINUED FOR 3 YEARS FOR PREGNANCY.
     Route: 048
  3. SORIATANE [Suspect]
     Dosage: DOSING AMOUNT REPORTED AS 0.6 MG/KG/DAY. TREATMENT DISCONTINUED FOR 3 YEARS FOR PREGNANCY.
     Route: 048
     Dates: start: 19880615
  4. AUGMENTIN '125' [Concomitant]
     Indication: INFECTION PROPHYLAXIS

REACTIONS (4)
  - BALANCE DISORDER [None]
  - CAUDA EQUINA SYNDROME [None]
  - GAIT DISTURBANCE [None]
  - HYPOAESTHESIA [None]
